FAERS Safety Report 7803892-9 (Version None)
Quarter: 2011Q4

REPORT INFORMATION
  Report Type: 
  Country: None (occurrence: None)
  Receive Date: 20111010
  Receipt Date: 20111003
  Transmission Date: 20120403
  Serious: Yes (Hospitalization, Other)
  Sender: FDA-Public Use
  Company Number: JP-PFIZER INC-2011071318

PATIENT
  Age: 64 Year
  Sex: Male
  Weight: 47 kg

DRUGS (3)
  1. SUTENT [Suspect]
     Indication: RENAL CELL CARCINOMA
     Dosage: 37.5 MG, 1X/DAY
     Route: 048
     Dates: start: 20110224, end: 20110322
  2. INDOMETHACIN [Concomitant]
     Indication: PYREXIA
     Dosage: 50 MG, AS NEEDED
     Route: 054
     Dates: start: 20110308, end: 20110310
  3. VOLTAREN [Concomitant]
     Indication: PYREXIA
     Dosage: 25 MG, AS NEEDED
     Route: 048
     Dates: start: 20110311, end: 20110313

REACTIONS (8)
  - TOOTHACHE [None]
  - EXCORIATION [None]
  - GASTROOESOPHAGEAL REFLUX DISEASE [None]
  - OESOPHAGEAL HAEMORRHAGE [None]
  - CHEST DISCOMFORT [None]
  - NAUSEA [None]
  - HICCUPS [None]
  - ABDOMINAL DISCOMFORT [None]
